FAERS Safety Report 8076889-4 (Version None)
Quarter: 2012Q1

REPORT INFORMATION
  Report Type: 
  Country: None (occurrence: None)
  Receive Date: 20120127
  Receipt Date: 20120118
  Transmission Date: 20120608
  Serious: Yes (Hospitalization, Other)
  Sender: FDA-Public Use
  Company Number: PHHO2010JP02048

PATIENT
  Sex: Male
  Weight: 83 kg

DRUGS (19)
  1. NOVORAPID [Concomitant]
     Indication: DIABETES MELLITUS
     Dosage: 30 IU
     Route: 058
     Dates: start: 20081027
  2. DIART [Concomitant]
     Indication: NEPHROTIC SYNDROME
     Dosage: 60MG, 90MG, 120MG
     Route: 048
     Dates: start: 20090406
  3. ALDACTONE [Concomitant]
     Indication: HYPERTENSION
     Dosage: 25 MG, UNK
     Route: 048
     Dates: start: 20100706
  4. ALISKIREN [Suspect]
     Indication: CARDIOVASCULAR DISORDER
     Dosage: UNK
     Route: 048
     Dates: start: 20081208, end: 20090511
  5. ALDACTONE [Concomitant]
     Indication: NEPHROTIC SYNDROME
  6. KINEDAK [Concomitant]
     Indication: DIABETIC NEUROPATHY
     Dosage: 150 MG, UNK
     Route: 048
     Dates: start: 20060101
  7. DIART [Concomitant]
     Dosage: 60 MG, UNK
     Dates: start: 20100817
  8. ATELEC [Concomitant]
     Indication: HYPERTENSION
     Dosage: 20 MG, UNK
     Route: 048
     Dates: start: 20100126
  9. ADONA [Concomitant]
     Indication: VITREOUS HAEMORRHAGE
     Dosage: 90 MG, UNK
     Route: 048
     Dates: start: 20090827
  10. OLMESARTAN MEDOXOMIL [Concomitant]
     Indication: HYPERTENSION
     Dosage: 40 MG, UNK
     Route: 048
     Dates: start: 20080421
  11. LANTUS [Concomitant]
     Indication: DIABETES MELLITUS
     Dosage: 26 IU
     Route: 058
     Dates: start: 20091102
  12. LANTUS [Concomitant]
     Dosage: 14 IU, DAILY
     Dates: start: 20110822
  13. LIPITOR [Concomitant]
     Indication: HYPERLIPIDAEMIA
     Dosage: 30 MG, 20 MG
     Route: 048
     Dates: start: 20090302
  14. ALLOPURINOL [Concomitant]
     Indication: HYPERURICAEMIA
     Dosage: 100 MG, BID
     Route: 048
     Dates: start: 20060101
  15. NOVORAPID [Concomitant]
     Dosage: 12 IU, DAILY
     Dates: start: 20110822
  16. CONIEL [Concomitant]
     Indication: HYPERTENSION
     Dosage: 8 MG, UNK
     Route: 048
     Dates: start: 20080929, end: 20100125
  17. LANTUS [Concomitant]
     Dosage: 8 IU, DAILY
     Route: 058
     Dates: start: 20111013
  18. ACECOL [Concomitant]
     Indication: HYPERTENSION
     Dosage: 4 MG, UNK
     Route: 048
     Dates: start: 20090526
  19. ZETIA [Concomitant]
     Indication: HYPERLIPIDAEMIA
     Dosage: 10 MG, UNK
     Route: 048
     Dates: start: 20090810

REACTIONS (8)
  - ATRIOVENTRICULAR BLOCK SECOND DEGREE [None]
  - MALAISE [None]
  - ACUTE CORONARY SYNDROME [None]
  - HYPOGLYCAEMIA [None]
  - NEPHROTIC SYNDROME [None]
  - FEELING COLD [None]
  - LUNG SQUAMOUS CELL CARCINOMA STAGE III [None]
  - VITREOUS HAEMORRHAGE [None]
